FAERS Safety Report 8596845-7 (Version None)
Quarter: 2012Q3

REPORT INFORMATION
  Report Type: 
  Country: None (occurrence: None)
  Receive Date: 20120815
  Receipt Date: 20120809
  Transmission Date: 20120928
  Serious: Yes (Hospitalization)
  Sender: FDA-Public Use
  Company Number: US-B.I. PHARMACEUTICALS,INC./RIDGEFIELD-2012-BP-18848BP

PATIENT
  Sex: Male

DRUGS (2)
  1. MEDICATION NOT FURTHER SPECIFIED [Concomitant]
  2. SPIRIVA [Suspect]
     Indication: CHRONIC OBSTRUCTIVE PULMONARY DISEASE
     Dosage: 18 MCG
     Route: 055
     Dates: start: 20110101

REACTIONS (5)
  - VIRAL INFECTION [None]
  - PYREXIA [None]
  - DRUG INEFFECTIVE [None]
  - PULMONARY OEDEMA [None]
  - HEART RATE INCREASED [None]
